FAERS Safety Report 4354381-8 (Version None)
Quarter: 2004Q2

REPORT INFORMATION
  Report Type: 
  Country: None (occurrence: None)
  Receive Date: 20040503
  Receipt Date: 20040421
  Transmission Date: 20050107
  Serious: Yes (Hospitalization)
  Sender: FDA-Public Use
  Company Number: 206032

PATIENT
  Age: 43 Year
  Sex: Female
  Weight: 66.2 kg

DRUGS (3)
  1. HERCEPTIN [Suspect]
     Indication: BREAST CANCER
     Dosage: 132 MG, 1/WEEK, INTRAVENOUS
     Route: 042
     Dates: start: 20040329
  2. TAXOL [Suspect]
     Dosage: 383 MG, Q3W, INTRAVENOUS
     Route: 042
     Dates: start: 20040330
  3. SYNTHROID [Concomitant]

REACTIONS (2)
  - FUNGAL INFECTION [None]
  - NEUTROPENIC INFECTION [None]
